FAERS Safety Report 19197618 (Version 1)
Quarter: 2021Q2

REPORT INFORMATION
  Report Type: Spontaneous
  Country: US (occurrence: US)
  Receive Date: 20210430
  Receipt Date: 20210430
  Transmission Date: 20210717
  Serious: No
  Sender: FDA-Public Use
  Company Number: US-ASTRAZENECA-2021A273129

PATIENT
  Sex: Male
  Weight: 74.8 kg

DRUGS (3)
  1. ALBUTEROL INHALER [Concomitant]
     Active Substance: ALBUTEROL
     Dosage: INCREASED
  2. ALBUTEROL INHALER [Concomitant]
     Active Substance: ALBUTEROL
  3. FASENRA [Suspect]
     Active Substance: BENRALIZUMAB
     Indication: ASTHMA
     Route: 055
     Dates: start: 2020

REACTIONS (3)
  - Intentional device use issue [Unknown]
  - Therapeutic product effect decreased [Unknown]
  - Dyspnoea [Unknown]
